FAERS Safety Report 8329596-4 (Version None)
Quarter: 2012Q2

REPORT INFORMATION
  Report Type: 
  Country: None (occurrence: None)
  Receive Date: 20120502
  Receipt Date: 20120423
  Transmission Date: 20120825
  Serious: Yes (Hospitalization)
  Sender: FDA-Public Use
  Company Number: PHHO2012JP002544

PATIENT
  Sex: Male

DRUGS (20)
  1. ENALAPRIL MALEATE [Suspect]
     Dosage: UNK
     Route: 048
     Dates: start: 20100304, end: 20120202
  2. WARFARIN SODIUM [Suspect]
     Dosage: 3.5 MG, UNK
     Route: 048
     Dates: start: 20110428, end: 20110803
  3. WARFARIN SODIUM [Suspect]
     Dosage: 3.5 MG, UNK
     Route: 048
     Dates: start: 20110827, end: 20110905
  4. LASIX [Suspect]
     Indication: CARDIAC FAILURE CHRONIC
     Dosage: 40 MG, UNK
     Route: 048
     Dates: start: 20080722
  5. WARFARIN SODIUM [Suspect]
     Dosage: 3.5 MG, UNK
     Route: 048
     Dates: start: 20110810, end: 20110821
  6. WARFARIN SODIUM [Suspect]
     Dosage: 3.25 MG, UNK
     Route: 048
     Dates: start: 20110916
  7. SLOW-K [Suspect]
     Indication: HYPOKALAEMIA
     Dosage: 600 MG, UNK
     Route: 048
     Dates: start: 20100916
  8. ASPIRIN [Suspect]
     Indication: PROPHYLAXIS
     Dosage: 200 MG, UNK
     Route: 048
     Dates: start: 20080722
  9. SIGMART [Suspect]
     Indication: PROPHYLAXIS
     Dosage: 15 MG, UNK
     Route: 048
     Dates: start: 20080722
  10. PULMICORT [Suspect]
     Dosage: UNK
     Dates: start: 20110915
  11. ALISKIREN [Suspect]
     Indication: CARDIAC FAILURE
     Dosage: UNK
     Route: 048
     Dates: start: 20100218, end: 20100303
  12. ALISKIREN [Suspect]
     Dosage: UNK
     Route: 048
     Dates: start: 20100304, end: 20120202
  13. ASPIRIN [Suspect]
     Dosage: 200 MG, UNK
     Route: 048
     Dates: start: 20110810, end: 20110818
  14. ASPIRIN [Suspect]
     Dosage: 100 MG, UNK
     Route: 048
     Dates: start: 20111021
  15. LIPITOR [Suspect]
     Dosage: 10 MG, UNK
     Route: 048
     Dates: start: 20080722
  16. RABEPRAZOLE SODIUM [Suspect]
     Indication: PROPHYLAXIS
     Dosage: 10 MG, UNK
     Route: 048
     Dates: start: 20080722
  17. ENALAPRIL MALEATE [Suspect]
     Indication: CARDIAC FAILURE
     Dosage: UNK
     Route: 048
     Dates: start: 20100107, end: 20100303
  18. ASPIRIN [Suspect]
     Dosage: 200 MG, UNK
     Route: 048
     Dates: start: 20110728
  19. CARVEDILOL [Suspect]
     Indication: CARDIAC FAILURE CHRONIC
     Dosage: 10 MG, UNK
     Route: 048
     Dates: start: 20081211
  20. ALLOPURINOL [Suspect]
     Dosage: 200 MG, UNK
     Route: 048
     Dates: start: 20080918

REACTIONS (5)
  - CEREBRAL INFARCTION [None]
  - CARDIO-RESPIRATORY ARREST [None]
  - ASTHMA [None]
  - ATRIAL THROMBOSIS [None]
  - TACHYCARDIA [None]
